FAERS Safety Report 8273950-6 (Version None)
Quarter: 2012Q2

REPORT INFORMATION
  Report Type: 
  Country: None (occurrence: None)
  Receive Date: 20120411
  Receipt Date: 20120402
  Transmission Date: 20120825
  Serious: Yes (Hospitalization)
  Sender: FDA-Public Use
  Company Number: BR-ASTRAZENECA-2012SE22275

PATIENT
  Age: 58 Year
  Sex: Male

DRUGS (6)
  1. ATENOLOL [Suspect]
     Indication: HYPERTENSION
     Route: 048
     Dates: start: 20040101
  2. ASPIRIN [Concomitant]
     Indication: ANGIOPLASTY
     Route: 048
     Dates: start: 20040101
  3. BRILINTA [Suspect]
     Indication: CORONARY ARTERY INSUFFICIENCY
     Route: 048
     Dates: start: 20120224, end: 20120401
  4. ROSUVASTATIN [Suspect]
     Indication: BLOOD CHOLESTEROL INCREASED
     Route: 048
     Dates: start: 20040101
  5. ATENOLOL [Suspect]
     Indication: CARDIAC OUTPUT DECREASED
     Route: 048
     Dates: start: 20040101
  6. CLOPIDOGREL [Suspect]
     Indication: CORONARY ARTERY INSUFFICIENCY
     Route: 048
     Dates: start: 20040101, end: 20120224

REACTIONS (3)
  - IN-STENT CORONARY ARTERY RESTENOSIS [None]
  - HAEMATOMA [None]
  - CORONARY ARTERY INSUFFICIENCY [None]
